FAERS Safety Report 14375866 (Version 2)
Quarter: 2018Q1

REPORT INFORMATION
  Report Type: Spontaneous
  Country: US (occurrence: US)
  Receive Date: 20180111
  Receipt Date: 20180115
  Transmission Date: 20180509
  Serious: Yes (Other)
  Sender: FDA-Public Use
  Company Number: US-PFIZER INC-2018013813

PATIENT
  Age: 81 Year
  Sex: Female
  Weight: 77 kg

DRUGS (10)
  1. LEVOTHYROXINE. [Concomitant]
     Active Substance: LEVOTHYROXINE
     Indication: THYROID DISORDER
     Dosage: 0.05 MG, 1X/DAY
     Route: 048
     Dates: start: 1993
  2. VITAMIN C [Concomitant]
     Active Substance: ASCORBIC ACID
     Dosage: 500 MG, 1X/DAY
     Route: 048
     Dates: start: 2013
  3. CITRACAL /00751520/ [Concomitant]
     Active Substance: CALCIUM CITRATE
     Indication: MINERAL SUPPLEMENTATION
     Dosage: 1500 MG, 1X/DAY (250MG 6 TABLETS ONCE A DAY BY MOUTH)
     Route: 048
     Dates: start: 2013
  4. PANTOPRAZOLE [Concomitant]
     Active Substance: PANTOPRAZOLE
     Indication: GASTROOESOPHAGEAL REFLUX DISEASE
     Dosage: 40 MG, 1X/DAY
     Route: 048
     Dates: start: 2015
  5. METHOTREXATE. [Concomitant]
     Active Substance: METHOTREXATE
     Indication: RHEUMATOID ARTHRITIS
     Dosage: 7.5 MG, WEEKLY
     Dates: start: 2013
  6. LEUCOVORIN /00566701/ [Concomitant]
     Active Substance: LEUCOVORIN
     Dosage: 5 MG, UNK (5MG TABLET ONCE A WEEK)
     Route: 048
     Dates: start: 2014
  7. HYDROXYCHLOROQUINE [Concomitant]
     Active Substance: HYDROXYCHLOROQUINE
     Dosage: 200 MG, UNK (SHE ALTERNATES EVERY OTHER DAY WITH TWO TABLETS AND ONE TABLET, EVERY OTHER DAY)
     Route: 048
     Dates: start: 2014
  8. CENTRUM SILVER /02363801/ [Concomitant]
     Active Substance: MINERALS\VITAMINS
     Indication: MINERAL SUPPLEMENTATION
     Dosage: 1 DF, 1X/DAY
     Route: 048
     Dates: start: 2013
  9. XELJANZ [Suspect]
     Active Substance: TOFACITINIB CITRATE
     Indication: RHEUMATOID ARTHRITIS
     Dosage: 5 MG, 2X/DAY
     Route: 048
     Dates: start: 20171011, end: 20171206
  10. METOPROLOL. [Concomitant]
     Active Substance: METOPROLOL
     Indication: BLOOD PRESSURE ABNORMAL
     Dosage: 25 MG, 1X/DAY
     Route: 048
     Dates: start: 2015

REACTIONS (7)
  - Viral infection [Recovered/Resolved]
  - Oropharyngeal pain [Recovered/Resolved]
  - Productive cough [Recovered/Resolved]
  - Nasopharyngitis [Unknown]
  - Headache [Recovered/Resolved]
  - Malaise [Recovered/Resolved]
  - Lower respiratory tract infection [Recovered/Resolved]

NARRATIVE: CASE EVENT DATE: 201712
